FAERS Safety Report 13199348 (Version 2)
Quarter: 2017Q1

REPORT INFORMATION
  Report Type: Report from Study
  Country: GB (occurrence: GB)
  Receive Date: 20170208
  Receipt Date: 20170316
  Transmission Date: 20170428
  Serious: Yes (Other)
  Sender: FDA-Public Use
  Company Number: GB-VERTEX PHARMACEUTICALS-2017-000643

PATIENT
  Age: 38 Year
  Sex: Female
  Weight: 59 kg

DRUGS (22)
  1. OMEPRAZOLE. [Concomitant]
     Active Substance: OMEPRAZOLE
     Dosage: 1 DF, BID
  2. VITAMIN E [Concomitant]
     Active Substance: .ALPHA.-TOCOPHEROL
     Dosage: TWO DAYS PER WEEK
     Route: 048
  3. ORKAMBI [Suspect]
     Active Substance: IVACAFTOR\LUMACAFTOR
     Indication: CYSTIC FIBROSIS
     Dosage: 1 DF, QD
     Route: 048
     Dates: start: 20161025, end: 20161026
  4. MIRENA [Concomitant]
     Active Substance: LEVONORGESTREL
     Dosage: 20 MICROGRAM/ 24 HOURS, TO BE CHANGED EVERY 5 HOURS
     Route: 015
  5. ADCAL D3 [Concomitant]
     Active Substance: CALCIUM CARBONATE\CHOLECALCIFEROL
     Dosage: 2 DF, BID
  6. BUDESONIDE W/FORMOTEROL [Concomitant]
     Active Substance: BUDESONIDE\FORMOTEROL
     Dosage: 2 PUFFS, TID
     Route: 055
  7. SALBUTAMOL [Concomitant]
     Active Substance: ALBUTEROL
     Dosage: 1 DOSE, QID (2.5MG/2.5ML NEBULISER LIQUID UNIT DOSE VIALS)
  8. ORKAMBI [Suspect]
     Active Substance: IVACAFTOR\LUMACAFTOR
     Dosage: 1 DF IN THE MORNING AND 2 DF AT NIGHT
     Route: 048
     Dates: start: 20161101, end: 20161102
  9. COCODAMOL [Concomitant]
     Active Substance: ACETAMINOPHEN\CODEINE PHOSPHATE
     Dosage: 1-2 TABLETS, QID, PRN
     Route: 048
  10. ANTIBIOTICS [Concomitant]
     Active Substance: UNSPECIFIED INGREDIENT
     Dosage: UNK
     Route: 042
     Dates: start: 201610
  11. LEVEMIR [Concomitant]
     Active Substance: INSULIN DETEMIR
     Dosage: PRN
     Route: 058
  12. SALBUTAMOL [Concomitant]
     Active Substance: ALBUTEROL
     Dosage: 3 PUFFS, BID (100MICROGRAMS/DOSE BREATH)
     Route: 055
  13. ORKAMBI [Suspect]
     Active Substance: IVACAFTOR\LUMACAFTOR
     Dosage: 1 DF, BID
     Route: 048
     Dates: start: 20161027, end: 20161031
  14. AZITHROMYCIN ANHYDROUS. [Concomitant]
     Active Substance: AZITHROMYCIN ANHYDROUS
     Dosage: 1 DF, QD
  15. CREON [Concomitant]
     Active Substance: PANCRELIPASE AMYLASE\PANCRELIPASE LIPASE\PANCRELIPASE PROTEASE
  16. ORKAMBI [Suspect]
     Active Substance: IVACAFTOR\LUMACAFTOR
     Dosage: 2 DF, BID (FULL DOSE)
     Route: 048
     Dates: start: 20161103, end: 20161114
  17. AZTREONAM. [Concomitant]
     Active Substance: AZTREONAM
     Dosage: 1 VIAL, TID
     Route: 055
  18. COLECALCIFEROL [Concomitant]
     Active Substance: CHOLECALCIFEROL
     Dosage: 2400 UNITS, QD
     Route: 048
  19. NOVORAPID [Concomitant]
     Active Substance: INSULIN ASPART
     Dosage: IMMEDIATELY BEFORE MEALS OR WHEN NECESSARY SHORTLY AFTER MEALS ACCORDING TO REQUIREMENTS
     Route: 058
  20. VALUPAK MULTIVITAMIN [Concomitant]
     Dosage: 1 DF, QD (4 TABLETS TO BE TAKEN AS A SINGLE DOSE)
     Route: 048
  21. DORNASE ALFA [Concomitant]
     Active Substance: DORNASE ALFA
     Dosage: 1 AMPULE, BID
     Route: 055
  22. TOBRAMYCIN. [Concomitant]
     Active Substance: TOBRAMYCIN
     Dosage: 4 DF, BID
     Route: 055

REACTIONS (4)
  - Pulmonary function test decreased [Recovering/Resolving]
  - Dyspnoea [Recovered/Resolved]
  - Wheezing [Recovered/Resolved]
  - Respiration abnormal [Recovered/Resolved]

NARRATIVE: CASE EVENT DATE: 20161031
